FAERS Safety Report 6300443-5 (Version None)
Quarter: 2009Q3

REPORT INFORMATION
  Report Type: 
  Country: None (occurrence: None)
  Receive Date: 20090806
  Receipt Date: 20090407
  Transmission Date: 20100115
  Serious: No
  Sender: FDA-Public Use
  Company Number: US-ABBOTT-08P-163-0488582-00

PATIENT
  Sex: Female
  Weight: 72.64 kg

DRUGS (6)
  1. DEPAKOTE ER [Suspect]
     Indication: MIGRAINE PROPHYLAXIS
     Route: 048
     Dates: start: 20090101
  2. DEPAKOTE ER [Suspect]
     Dosage: INCREASED DOSE GIVEN AFTER TAKEN OFF OF TOPAMAX
     Route: 048
     Dates: start: 20081001, end: 20090201
  3. DEPAKOTE ER [Suspect]
     Route: 048
     Dates: start: 20060101, end: 20081001
  4. DEPAKOTE [Suspect]
     Indication: MIGRAINE PROPHYLAXIS
     Route: 048
     Dates: start: 20030101, end: 20060101
  5. TOPAMAX [Suspect]
     Indication: MIGRAINE PROPHYLAXIS
     Dates: start: 20081001, end: 20081001
  6. IMITREX [Concomitant]
     Indication: MIGRAINE
     Route: 048
     Dates: start: 20010101

REACTIONS (2)
  - FATIGUE [None]
  - MIGRAINE [None]
